FAERS Safety Report 24845047 (Version 1)
Quarter: 2025Q1

REPORT INFORMATION
  Report Type: Spontaneous
  Country: US (occurrence: US)
  Receive Date: 20250115
  Receipt Date: 20250115
  Transmission Date: 20250409
  Serious: Yes (Death, Hospitalization, Other)
  Sender: GILEAD
  Company Number: US-GILEAD-2025-0700072

PATIENT
  Age: 66 Year
  Sex: Male

DRUGS (1)
  1. LENACAPAVIR [Suspect]
     Active Substance: LENACAPAVIR
     Indication: HIV infection
     Route: 058
     Dates: start: 202303

REACTIONS (3)
  - Death [Fatal]
  - Transient ischaemic attack [Unknown]
  - Fall [Unknown]

NARRATIVE: CASE EVENT DATE: 20250110
